FAERS Safety Report 10789578 (Version 1)
Quarter: 2015Q1

REPORT INFORMATION
  Report Type: Spontaneous
  Country: AR (occurrence: AR)
  Receive Date: 20150212
  Receipt Date: 20150212
  Transmission Date: 20150721
  Serious: Yes (Hospitalization, Disabling, Other)
  Sender: FDA-Public Use
  Company Number: AR-ACTELION-A-CH2012-66497

PATIENT
  Age: 23 Year
  Sex: Female

DRUGS (14)
  1. ZAVESCA [Suspect]
     Active Substance: MIGLUSTAT
     Dosage: 500 MG, QD
     Route: 048
     Dates: end: 20120522
  2. FLORATIL [Concomitant]
  3. ZAVESCA [Suspect]
     Active Substance: MIGLUSTAT
     Indication: NIEMANN-PICK DISEASE
     Dosage: 100 MG, UNK
     Route: 048
     Dates: start: 201211, end: 201303
  4. OMEPRAZOL [Concomitant]
     Active Substance: OMEPRAZOLE
  5. ZAVESCA [Suspect]
     Active Substance: MIGLUSTAT
     Dosage: 600 MG
     Route: 048
  6. AMOXICILLIN CLAVULANIC ACID [Suspect]
     Active Substance: AMOXICILLIN\CLAVULANIC ACID
     Indication: PRODUCT USED FOR UNKNOWN INDICATION
     Dosage: UNK
     Route: 048
     Dates: start: 201208, end: 201208
  7. SULFATO FERROSO [Concomitant]
  8. CLINDACINE [Suspect]
     Active Substance: CLINDAMYCIN\CLINDAMYCIN PHOSPHATE
     Indication: PRODUCT USED FOR UNKNOWN INDICATION
     Dosage: UNK
     Route: 065
     Dates: start: 201208, end: 201208
  9. LEVOMEPROMAZINA [Concomitant]
  10. SUPRADYN [Concomitant]
     Active Substance: ASCORBIC ACID\MINERALS\VITAMINS
  11. ZAVESCA [Suspect]
     Active Substance: MIGLUSTAT
     Dosage: UNK
     Route: 048
     Dates: start: 201107
  12. VIT B12 + FOLIC AC [Concomitant]
  13. ATENOLOL. [Concomitant]
     Active Substance: ATENOLOL
     Dosage: 25 MG, OD
  14. RANITIDINE [Concomitant]
     Active Substance: RANITIDINE\RANITIDINE HYDROCHLORIDE

REACTIONS (4)
  - Dyspepsia [Recovered/Resolved]
  - Diarrhoea [Unknown]
  - Pneumonia [Unknown]
  - Weight decreased [Unknown]

NARRATIVE: CASE EVENT DATE: 20120526
